FAERS Safety Report 12880378 (Version 2)
Quarter: 2016Q4

REPORT INFORMATION
  Report Type: Spontaneous
  Country: GB (occurrence: GB)
  Receive Date: 20161025
  Receipt Date: 20161107
  Transmission Date: 20170207
  Serious: Yes (Death, Other)
  Sender: FDA-Public Use
  Company Number: GB-EMD SERONO-8113465

PATIENT
  Age: 34 Year
  Sex: Female

DRUGS (1)
  1. REBIF [Suspect]
     Active Substance: INTERFERON BETA-1A
     Indication: MULTIPLE SCLEROSIS
     Route: 058
     Dates: start: 20070723, end: 20160717

REACTIONS (3)
  - Metastases to peritoneum [Fatal]
  - Ascites [Fatal]
  - Metastases to liver [Fatal]
